FAERS Safety Report 18927412 (Version 3)
Quarter: 2023Q2

REPORT INFORMATION
  Report Type: Report from Study
  Country: US (occurrence: US)
  Receive Date: 20210223
  Receipt Date: 20230525
  Transmission Date: 20230721
  Serious: No
  Sender: FDA-Public Use
  Company Number: US-NOVARTISTESTPH-NVSC2021US034105

PATIENT
  Sex: Female

DRUGS (3)
  1. ILARIS [Suspect]
     Active Substance: CANAKINUMAB
     Indication: Pyrexia
     Dosage: 150 MG, Q4W
     Route: 058
     Dates: start: 20200821
  2. ILARIS [Suspect]
     Active Substance: CANAKINUMAB
     Indication: Autoinflammatory disease
     Dosage: 150 MG, Q4W
     Route: 058
     Dates: start: 20210109
  3. ILARIS [Suspect]
     Active Substance: CANAKINUMAB
     Dosage: 150 MG, QMO(VIAL)
     Route: 058

REACTIONS (3)
  - Pyrexia [Unknown]
  - Product dose omission issue [Unknown]
  - Inappropriate schedule of product administration [Unknown]
